FAERS Safety Report 8207314-8 (Version None)
Quarter: 2012Q1

REPORT INFORMATION
  Report Type: 
  Country: None (occurrence: None)
  Receive Date: 20120314
  Receipt Date: 20120306
  Transmission Date: 20120608
  Serious: Yes (Other)
  Sender: FDA-Public Use
  Company Number: US-UCBSA-023158

PATIENT
  Age: 18 Year
  Sex: Female
  Weight: 61.23 kg

DRUGS (4)
  1. CIMZIA [Suspect]
     Indication: CROHN'S DISEASE
     Dosage: FREQUENCY: 0,2 + 4
     Route: 058
     Dates: start: 20101117
  2. CIMZIA [Suspect]
     Route: 058
     Dates: start: 20111201
  3. CIPROFLOXACIN [Concomitant]
     Indication: CROHN'S DISEASE
     Route: 048
     Dates: start: 20101101
  4. IRON [Concomitant]
     Indication: ANAEMIA
     Route: 048
     Dates: start: 20100801

REACTIONS (3)
  - CROHN'S DISEASE [None]
  - PSORIASIS [None]
  - INJECTION SITE NODULE [None]
